FAERS Safety Report 25429551 (Version 1)
Quarter: 2025Q2

REPORT INFORMATION
  Report Type: Spontaneous
  Country: US (occurrence: US)
  Receive Date: 20250612
  Receipt Date: 20250612
  Transmission Date: 20250717
  Serious: No
  Sender: PIERRE FABRE MEDICAMENT
  Company Number: US-PFM-2025-01848

PATIENT
  Sex: Female
  Weight: 13.696 kg

DRUGS (1)
  1. HEMANGEOL [Suspect]
     Active Substance: PROPRANOLOL HYDROCHLORIDE
     Indication: Haemangioma
     Dosage: 5.5 ML, BID (2/DAY)

REACTIONS (3)
  - Sleep disorder [Unknown]
  - Product administered to patient of inappropriate age [Unknown]
  - Off label use [Unknown]
